FAERS Safety Report 11004295 (Version 1)
Quarter: 2015Q2

REPORT INFORMATION
  Report Type: Spontaneous
  Country: IT (occurrence: None)
  Receive Date: 20150407
  Receipt Date: 20150407
  Transmission Date: 20150821
  Serious: Yes (Hospitalization, Other)
  Sender: FDA-Public Use
  Company Number: KAD201504-000718

PATIENT
  Age: 49 Year
  Sex: Male

DRUGS (3)
  1. SOVALDI [Suspect]
     Active Substance: SOFOSBUVIR
  2. RIBAVIRIN (RIBAVIRIN) [Suspect]
     Active Substance: RIBAVIRIN
     Indication: HEPATITIS C
     Route: 048
     Dates: start: 20150227, end: 20150311
  3. PEGINTRON [Suspect]
     Active Substance: PEGINTERFERON ALFA-2B
     Indication: HEPATITIS C
     Route: 058
     Dates: start: 20150227, end: 20150311

REACTIONS (2)
  - Pneumonitis [None]
  - Hepatitis C [None]

NARRATIVE: CASE EVENT DATE: 20150311
